FAERS Safety Report 21332434 (Version 1)
Quarter: 2022Q3

REPORT INFORMATION
  Report Type: Spontaneous
  Country: CA (occurrence: CA)
  Receive Date: 20220914
  Receipt Date: 20220914
  Transmission Date: 20221027
  Serious: Yes (Other)
  Sender: FDA-Public Use
  Company Number: None

PATIENT
  Age: 2 Year
  Sex: Female

DRUGS (1)
  1. MONTELUKAST [Suspect]
     Active Substance: MONTELUKAST SODIUM
     Indication: Prophylaxis
     Dosage: 1.0 SACHET, 1 EVERY 1 DAYS

REACTIONS (5)
  - Aggression [Unknown]
  - Crying [Unknown]
  - Poor quality sleep [Unknown]
  - Psychotic disorder [Unknown]
  - Screaming [Unknown]
